FAERS Safety Report 20951041 (Version 2)
Quarter: 2023Q1

REPORT INFORMATION
  Report Type: Spontaneous
  Country: JP (occurrence: JP)
  Receive Date: 20220613
  Receipt Date: 20230224
  Transmission Date: 20230418
  Serious: Yes (Other)
  Sender: FDA-Public Use
  Company Number: JP-PFIZER INC-202200794382

PATIENT
  Age: 67 Year
  Sex: Female

DRUGS (1)
  1. CEFTRIAXONE SODIUM [Suspect]
     Active Substance: CEFTRIAXONE SODIUM
     Indication: Oral bacterial infection
     Dosage: 2 G, 2X/DAY (EVERY 12HRS)
     Route: 042

REACTIONS (1)
  - Cholangitis [Unknown]
